FAERS Safety Report 9218843 (Version 1)
Quarter: 2013Q2

REPORT INFORMATION
  Report Type: Spontaneous
  Country: US (occurrence: None)
  Receive Date: 20130405
  Receipt Date: 20130405
  Transmission Date: 20140414
  Serious: Yes (Other)
  Sender: FDA-Public Use
  Company Number: None

PATIENT
  Age: 50 Year
  Sex: Male
  Weight: 149.23 kg

DRUGS (1)
  1. CLOPIDOGREL [Suspect]
     Indication: STENT PLACEMENT
     Dosage: 1 DOSE DAILY PO
     Route: 048
     Dates: start: 20120710, end: 20130404

REACTIONS (5)
  - Epistaxis [None]
  - Dizziness [None]
  - Skin haemorrhage [None]
  - Product substitution issue [None]
  - Haematoma [None]
